FAERS Safety Report 4406768-2 (Version None)
Quarter: 2004Q3

REPORT INFORMATION
  Report Type: 
  Country: None (occurrence: None)
  Receive Date: 20040715
  Receipt Date: 20040709
  Transmission Date: 20050211
  Serious: Yes (Death, Hospitalization)
  Sender: FDA-Public Use
  Company Number: STA-AE-04-MTX-301

PATIENT
  Age: 67 Year
  Sex: Male

DRUGS (13)
  1. RHEUMATREX [Suspect]
     Indication: RHEUMATOID ARTHRITIS
     Dosage: 6 MG 1  X PER 1 WK, ORAL
     Route: 048
     Dates: start: 20040110, end: 20040310
  2. RHEUMATREX [Suspect]
     Indication: RHEUMATOID ARTHRITIS
     Dosage: 4 MG 1 X PER 1 WK, ORAL
     Route: 048
     Dates: start: 20040311, end: 20040403
  3. RIMATIL [Suspect]
     Indication: RHEUMATOID ARTHRITIS
     Dosage: ORAL
     Route: 048
     Dates: start: 20040106, end: 20040519
  4. ZYRTEC [Concomitant]
  5. PREDNISOLONE [Concomitant]
  6. EPADEL        (ETHYL ICOSAPENTATE) [Concomitant]
  7. LOXONIN (LOXOPROFEN SODIUM) [Concomitant]
  8. FAMOTIDINE [Concomitant]
  9. ALENDRONATE SODIUM [Concomitant]
  10. MYCODINE (CARBOCISTEINE) [Concomitant]
  11. CLARITHROMYCIN [Concomitant]
  12. LEVOFLOXACIN [Concomitant]
  13. BISOLVON (BROMPHEXINE HYDROCHLORIDE) [Concomitant]

REACTIONS (9)
  - ALANINE AMINOTRANSFERASE INCREASED [None]
  - ASPARTATE AMINOTRANSFERASE INCREASED [None]
  - CEREBRAL INFARCTION [None]
  - DRUG INEFFECTIVE [None]
  - DYSARTHRIA [None]
  - HYPOXIA [None]
  - INTERSTITIAL LUNG DISEASE [None]
  - LYMPHOCYTE STIMULATION TEST POSITIVE [None]
  - TACHYCARDIA [None]
